FAERS Safety Report 5910309-8 (Version None)
Quarter: 2008Q4

REPORT INFORMATION
  Report Type: 
  Country: None (occurrence: None)
  Receive Date: 20081007
  Receipt Date: 20071115
  Transmission Date: 20090506
  Serious: No
  Sender: FDA-Public Use
  Company Number: US-ASTRAZENECA-2007UW26528

PATIENT
  Age: 37 Year
  Weight: 63.5 kg

DRUGS (2)
  1. ARIMIDEX [Suspect]
     Indication: BREAST CANCER
     Route: 048
  2. ANTIBIOTICS [Concomitant]

REACTIONS (2)
  - ARTHRALGIA [None]
  - FEELING ABNORMAL [None]
